FAERS Safety Report 4443615-7 (Version None)
Quarter: 2004Q3

REPORT INFORMATION
  Report Type: 
  Country: None (occurrence: None)
  Receive Date: 20040903
  Receipt Date: 20040903
  Transmission Date: 20050211
  Serious: Yes (Other)
  Sender: FDA-Public Use
  Company Number: None

PATIENT
  Age: 40 Year
  Sex: Female
  Weight: 61.6892 kg

DRUGS (1)
  1. ZOLOFT [Suspect]
     Indication: PREMENSTRUAL SYNDROME
     Dosage: 50 MG QD PO
     Route: 048

REACTIONS (6)
  - BALANCE DISORDER [None]
  - DRUG DEPENDENCE [None]
  - DRUG WITHDRAWAL SYNDROME [None]
  - HYPERSENSITIVITY [None]
  - IMPAIRED WORK ABILITY [None]
  - VESTIBULAR DISORDER [None]
